FAERS Safety Report 24977062 (Version 3)
Quarter: 2025Q2

REPORT INFORMATION
  Report Type: Spontaneous
  Country: US (occurrence: US)
  Receive Date: 20250217
  Receipt Date: 20250516
  Transmission Date: 20250716
  Serious: No
  Sender: ROCHE
  Company Number: US-ROCHE-10000203274

PATIENT
  Age: 38 Year
  Sex: Female

DRUGS (3)
  1. TAMIFLU [Suspect]
     Active Substance: OSELTAMIVIR PHOSPHATE
     Indication: Influenza
     Route: 065
     Dates: start: 202501
  2. TREPROSTINIL SODIUM [Suspect]
     Active Substance: TREPROSTINIL SODIUM
     Indication: Pulmonary arterial hypertension
     Route: 042
     Dates: start: 202209
  3. TREPROSTINIL SODIUM [Suspect]
     Active Substance: TREPROSTINIL SODIUM
     Route: 042

REACTIONS (4)
  - Diarrhoea [Unknown]
  - Wheezing [Unknown]
  - Influenza [Not Recovered/Not Resolved]
  - Catheter site haemorrhage [Unknown]

NARRATIVE: CASE EVENT DATE: 20250123
